FAERS Safety Report 5669672-8 (Version None)
Quarter: 2008Q1

REPORT INFORMATION
  Report Type: 
  Country: None (occurrence: None)
  Receive Date: 20080317
  Receipt Date: 20080110
  Transmission Date: 20080703
  Serious: Yes (Other)
  Sender: FDA-Public Use
  Company Number: GB-ROCHE-540864

PATIENT
  Age: 32 Year
  Sex: Male
  Weight: 111 kg

DRUGS (4)
  1. ORLISTAT [Suspect]
     Indication: OBESITY
     Route: 048
     Dates: start: 20070926
  2. NAPROXIN [Concomitant]
     Indication: ANALGESIA
     Route: 048
  3. ALBUTEROL [Concomitant]
     Indication: ASTHMA
     Route: 055
  4. SERETIDE [Concomitant]
     Indication: ASTHMA
     Route: 055

REACTIONS (1)
  - NEPHROLITHIASIS [None]
